FAERS Safety Report 9303528 (Version 1)
Quarter: 2013Q2

REPORT INFORMATION
  Report Type: Spontaneous
  Country: US (occurrence: US)
  Receive Date: 20130522
  Receipt Date: 20130522
  Transmission Date: 20140414
  Serious: Yes (Hospitalization)
  Sender: FDA-Public Use
  Company Number: US-PFIZER INC-2013157301

PATIENT
  Age: 56 Year
  Sex: Female
  Weight: 83.9 kg

DRUGS (10)
  1. LYRICA [Suspect]
     Indication: HYPERCHOLESTEROLAEMIA
     Dosage: 200 MG, 3X/DAY
     Route: 048
  2. LISINOPRIL [Concomitant]
     Dosage: UNK
  3. OXYCODONE [Concomitant]
     Dosage: 10 MG, UNK
  4. SENNA [Concomitant]
     Indication: LAXATIVE SUPPORTIVE CARE
     Dosage: UNK
  5. CRESTOR [Concomitant]
     Dosage: 40 MG, UNK
  6. METOPROLOL [Concomitant]
     Dosage: UNK
  7. FOLIC ACID [Concomitant]
     Dosage: UNK
  8. NEXIUM [Concomitant]
     Dosage: UNK
  9. ASPIRIN [Concomitant]
     Dosage: UNK
  10. SULFAMETHOXAZOLE W/TRIMETHOPRIM [Concomitant]
     Dosage: UNK

REACTIONS (3)
  - Off label use [Unknown]
  - Renal disorder [Unknown]
  - Malaise [Unknown]
